FAERS Safety Report 10170370 (Version 1)
Quarter: 2014Q2

REPORT INFORMATION
  Report Type: Spontaneous
  Country: US (occurrence: US)
  Receive Date: 20140513
  Receipt Date: 20140513
  Transmission Date: 20141212
  Serious: No
  Sender: FDA-Public Use
  Company Number: US-GILEAD-2014-0102263

PATIENT
  Age: 54 Year
  Sex: Female

DRUGS (2)
  1. LETAIRIS [Suspect]
     Indication: PULMONARY HYPERTENSION
     Dosage: 5 MG, QD
     Route: 065
     Dates: start: 20140505
  2. DOC-Q-LACE [Concomitant]
     Dosage: 100 MG, UNK
     Route: 065

REACTIONS (1)
  - Swollen tongue [Unknown]
